FAERS Safety Report 16273901 (Version 2)
Quarter: 2019Q4

REPORT INFORMATION
  Report Type: Spontaneous
  Country: US (occurrence: US)
  Receive Date: 20190503
  Receipt Date: 20191105
  Transmission Date: 20200122
  Serious: No
  Sender: FDA-Public Use
  Company Number: US-RADIUS HEALTH INC.-2019US001081

PATIENT
  Age: 62 Year
  Sex: Female

DRUGS (1)
  1. TYMLOS [Suspect]
     Active Substance: ABALOPARATIDE
     Indication: OSTEOPOROSIS POSTMENOPAUSAL
     Dosage: 80 MCG, DAILY
     Route: 058
     Dates: start: 201903

REACTIONS (11)
  - Anxiety [Unknown]
  - Product quality issue [Unknown]
  - Injection site urticaria [Not Recovered/Not Resolved]
  - Fall [Unknown]
  - Injection site pain [Not Recovered/Not Resolved]
  - Heart rate increased [Unknown]
  - Product administered at inappropriate site [Unknown]
  - Product dose omission [Unknown]
  - Injection site discomfort [Unknown]
  - Foot fracture [Recovering/Resolving]
  - Headache [Recovered/Resolved]

NARRATIVE: CASE EVENT DATE: 20190327
